FAERS Safety Report 5818086-6 (Version None)
Quarter: 2008Q3

REPORT INFORMATION
  Report Type: 
  Country: None (occurrence: None)
  Receive Date: 20080722
  Receipt Date: 20070921
  Transmission Date: 20090109
  Serious: No
  Sender: FDA-Public Use
  Company Number: US-BAYER-US-2007-036029

PATIENT
  Age: 54 Year
  Sex: Male

DRUGS (4)
  1. MAGNEVIST [Suspect]
     Indication: NUCLEAR MAGNETIC RESONANCE IMAGING
     Dates: start: 20070901, end: 20070901
  2. DIURETICS [Concomitant]
  3. ASPIRIN [Concomitant]
  4. VITAMIN TAB [Concomitant]

REACTIONS (1)
  - RASH PAPULAR [None]
